FAERS Safety Report 8580850-0 (Version None)
Quarter: 2012Q3

REPORT INFORMATION
  Report Type: 
  Country: None (occurrence: None)
  Receive Date: 20120726
  Receipt Date: 20120629
  Transmission Date: 20120928
  Serious: Yes (Life-Threatening)
  Sender: FDA-Public Use
  Company Number: 1338232

PATIENT
  Age: 42 Year
  Sex: Male

DRUGS (2)
  1. GENTAMICIN SULFATE [Suspect]
     Indication: ANTIBIOTIC PROPHYLAXIS
     Dosage: 240 MG MILLIGRAM(S), INTRAVENOUS
     Route: 042
     Dates: start: 20120426, end: 20120426
  2. (TEICOPLANIN) [Suspect]
     Indication: ANTIBIOTIC PROPHYLAXIS
     Dosage: 600 MG MILLIGRAM(S), INTRAVENOUS
     Route: 042
     Dates: start: 20120426, end: 20120426

REACTIONS (1)
  - ANAPHYLACTIC REACTION [None]
